FAERS Safety Report 10157437 (Version 1)
Quarter: 2014Q2

REPORT INFORMATION
  Report Type: Spontaneous
  Country: US (occurrence: US)
  Receive Date: 20140507
  Receipt Date: 20140507
  Transmission Date: 20141212
  Serious: No
  Sender: FDA-Public Use
  Company Number: US-009507513-1404USA012230

PATIENT
  Age: 9 Year
  Sex: Male
  Weight: 27.3 kg

DRUGS (1)
  1. CLARITIN-D-12 [Suspect]
     Indication: HYPERSENSITIVITY
     Dosage: 5 MG, ONCE
     Route: 048
     Dates: start: 20140406, end: 20140406

REACTIONS (2)
  - Drug administered to patient of inappropriate age [Unknown]
  - Off label use [Unknown]
